FAERS Safety Report 16979755 (Version 3)
Quarter: 2022Q3

REPORT INFORMATION
  Report Type: Report from Study
  Country: CA (occurrence: CA)
  Receive Date: 20191031
  Receipt Date: 20220707
  Transmission Date: 20221027
  Serious: Yes (Hospitalization, Other)
  Sender: FDA-Public Use
  Company Number: CA-GLAXOSMITHKLINE-CA2019AMR141079

PATIENT

DRUGS (5)
  1. ALBUTEROL SULFATE [Suspect]
     Active Substance: ALBUTEROL SULFATE
     Indication: Product used for unknown indication
     Dosage: UNK
  2. NUCALA [Suspect]
     Active Substance: MEPOLIZUMAB
     Indication: Asthma
     Dosage: 100 MG, Z (MONTHLY)
     Route: 042
     Dates: start: 20190704
  3. NUCALA [Suspect]
     Active Substance: MEPOLIZUMAB
     Dosage: 100 MG, Z (MONTHLY)
  4. LEVOFLOXACIN [Suspect]
     Active Substance: LEVOFLOXACIN
     Indication: Product used for unknown indication
     Dosage: UNK
  5. INCRUSE ELLIPTA [Suspect]
     Active Substance: UMECLIDINIUM BROMIDE
     Indication: Product used for unknown indication
     Dosage: UNK

REACTIONS (14)
  - Hospitalisation [Unknown]
  - Endocarditis bacterial [Unknown]
  - Gastrointestinal haemorrhage [Unknown]
  - Diabetes mellitus [Unknown]
  - Renal failure [Unknown]
  - Fall [Unknown]
  - Aortic valve replacement [Unknown]
  - Muscular weakness [Unknown]
  - Intervertebral disc operation [Unknown]
  - Pain in extremity [Unknown]
  - Hypotonia [Unknown]
  - Bone contusion [Unknown]
  - Blood glucose increased [Unknown]
  - Drug intolerance [Unknown]
